FAERS Safety Report 23099162 (Version 3)
Quarter: 2023Q4

REPORT INFORMATION
  Report Type: Spontaneous
  Country: ES (occurrence: ES)
  Receive Date: 20231024
  Receipt Date: 20231031
  Transmission Date: 20240110
  Serious: No
  Sender: FDA-Public Use
  Company Number: ES-SA-SAC20231022000065

PATIENT
  Age: 61 Year
  Sex: Male

DRUGS (1)
  1. ISATUXIMAB [Suspect]
     Active Substance: ISATUXIMAB
     Dosage: UNK
     Route: 065

REACTIONS (1)
  - No adverse event [Unknown]
